FAERS Safety Report 7178435-6 (Version None)
Quarter: 2010Q4

REPORT INFORMATION
  Report Type: 
  Country: None (occurrence: None)
  Receive Date: 20101220
  Receipt Date: 20101210
  Transmission Date: 20110411
  Serious: Yes (Death, Congenital Anomaly, Other)
  Sender: FDA-Public Use
  Company Number: NG-B.I. PHARMACEUTICALS,INC./RIDGEFIELD-2010-DE-06895GD

PATIENT
  Sex: Male

DRUGS (11)
  1. NEVIRAPINE [Suspect]
     Indication: HIV TEST POSITIVE
  2. NEVIRAPINE [Suspect]
     Indication: DRUG EXPOSURE DURING PREGNANCY
     Route: 064
  3. PARACETAMOL [Suspect]
     Indication: DRUG EXPOSURE DURING PREGNANCY
     Route: 064
  4. STAVUDINE [Suspect]
     Indication: HIV TEST POSITIVE
  5. STAVUDINE [Suspect]
     Indication: DRUG EXPOSURE DURING PREGNANCY
     Route: 064
  6. LAMIVUDINE [Suspect]
     Indication: HIV TEST POSITIVE
  7. LAMIVUDINE [Suspect]
     Indication: DRUG EXPOSURE DURING PREGNANCY
     Route: 064
  8. CHLOROQUINE [Suspect]
     Indication: DRUG EXPOSURE DURING PREGNANCY
     Route: 064
  9. AMPICILLIN [Suspect]
     Indication: DRUG EXPOSURE DURING PREGNANCY
     Route: 064
  10. OTHER MEDICATIONS [Suspect]
     Indication: DRUG EXPOSURE DURING PREGNANCY
     Route: 064
  11. TRADITIONAL MEDICATIONS [Suspect]
     Indication: DRUG EXPOSURE DURING PREGNANCY
     Route: 064

REACTIONS (10)
  - ANAL ATRESIA [None]
  - CACHEXIA [None]
  - CONGENITAL EYE DISORDER [None]
  - CONGENITAL MUSCULOSKELETAL ANOMALY [None]
  - CONGENITAL NOSE MALFORMATION [None]
  - CONGENITAL ORAL MALFORMATION [None]
  - DEATH [None]
  - EAR MALFORMATION [None]
  - LETHARGY [None]
  - LOW SET EARS [None]
